FAERS Safety Report 24654464 (Version 4)
Quarter: 2025Q4

REPORT INFORMATION
  Report Type: Report from Study
  Country: JP (occurrence: JP)
  Receive Date: 20241122
  Receipt Date: 20251020
  Transmission Date: 20260118
  Serious: Yes (Death, Hospitalization, Other)
  Sender: ALEXION PHARMACEUTICALS
  Company Number: JP-ASTRAZENECA-240053153_011620_P_1

PATIENT
  Age: 45 Year
  Sex: Female
  Weight: 50 kg

DRUGS (4)
  1. OLAPARIB [Suspect]
     Active Substance: OLAPARIB
     Indication: Breast cancer female
     Dosage: UNK
     Dates: start: 20220826, end: 20230317
  2. TRAMADOL [Suspect]
     Active Substance: TRAMADOL
     Indication: Pain management
     Dosage: 25 MILLIGRAM, UNK
     Dates: start: 20220812, end: 20220829
  3. CALONAL [Suspect]
     Active Substance: ACETAMINOPHEN
     Indication: Breast cancer
     Dosage: 25 MILLIGRAM, UNK
     Dates: start: 20230317, end: 20230322
  4. DENOSUMAB [Suspect]
     Active Substance: DENOSUMAB
     Indication: Breast cancer
     Dosage: 120 MILLIGRAM, QD
     Dates: start: 20220826, end: 20230414

REACTIONS (7)
  - Anaemia [Fatal]
  - Metastases to stomach [Fatal]
  - Metastases to meninges [Fatal]
  - Diarrhoea [Recovered/Resolved]
  - Cytomegalovirus colitis [Recovering/Resolving]
  - Seizure [Recovered/Resolved]
  - Tumour associated fever [Recovering/Resolving]

NARRATIVE: CASE EVENT DATE: 20230301
